FAERS Safety Report 8281495-2 (Version None)
Quarter: 2012Q2

REPORT INFORMATION
  Report Type: 
  Country: None (occurrence: None)
  Receive Date: 20120410
  Receipt Date: 20120328
  Transmission Date: 20120825
  Serious: Yes (Hospitalization)
  Sender: FDA-Public Use
  Company Number: ACET20120001

PATIENT
  Age: 16 Year
  Sex: Female

DRUGS (1)
  1. Q-PAP EXTRA STRENGTH TABLETS 500MG (PARACETAMOL) [Suspect]
     Indication: OVERDOSE
     Dosage: 117 MG/KG, ONCE, ORAL
     Route: 048

REACTIONS (8)
  - DISEASE RECURRENCE [None]
  - LEUKOCYTURIA [None]
  - TUBULOINTERSTITIAL NEPHRITIS [None]
  - HEADACHE [None]
  - NEPHROPATHY TOXIC [None]
  - VOMITING [None]
  - OVERDOSE [None]
  - HYPOSTHENURIA [None]
